FAERS Safety Report 5467548-2 (Version None)
Quarter: 2007Q3

REPORT INFORMATION
  Report Type: 
  Country: None (occurrence: None)
  Receive Date: 20070921
  Receipt Date: 20070907
  Transmission Date: 20080115
  Serious: Yes (Hospitalization)
  Sender: FDA-Public Use
  Company Number: 8026917

PATIENT
  Age: 49 Year
  Sex: Female

DRUGS (16)
  1. KEPPRA [Suspect]
     Indication: CONVULSION
     Dates: start: 20070601
  2. ZYRTEC [Suspect]
     Indication: MULTIPLE ALLERGIES
     Dosage: 10 MG 1/D PO
     Route: 048
  3. ZELNORM [Suspect]
  4. LISINOPRIL [Concomitant]
  5. PLAVIX [Concomitant]
  6. CLONIDINE [Concomitant]
  7. LASIX [Concomitant]
  8. AMITIZA [Concomitant]
  9. ZOCOR [Concomitant]
  10. MST /0036302/ [Concomitant]
  11. BACLOFEN [Concomitant]
  12. CARDIZEM CD [Concomitant]
  13. ASPIRIN [Concomitant]
  14. MECLIZINE [Concomitant]
  15. MECLIZINE [Concomitant]
  16. PRILOSEC /00661201 [Concomitant]

REACTIONS (9)
  - CARDIOMEGALY [None]
  - CONVULSION [None]
  - CORONARY ARTERY OCCLUSION [None]
  - FALL [None]
  - FRACTURE [None]
  - HYPERSOMNIA [None]
  - INSOMNIA [None]
  - ROAD TRAFFIC ACCIDENT [None]
  - SLEEP DISORDER [None]
